FAERS Safety Report 5299898-7 (Version None)
Quarter: 2007Q2

REPORT INFORMATION
  Report Type: 
  Country: None (occurrence: None)
  Receive Date: 20070417
  Receipt Date: 20070403
  Transmission Date: 20071010
  Serious: Yes (Other)
  Sender: FDA-Public Use
  Company Number: US-PFIZER INC-2007027869

PATIENT
  Sex: Female

DRUGS (1)
  1. CHANTIX [Suspect]
     Dates: start: 20070301, end: 20070301

REACTIONS (4)
  - ABDOMINAL PAIN UPPER [None]
  - BLOOD URINE PRESENT [None]
  - HEADACHE [None]
  - TINNITUS [None]
